FAERS Safety Report 23384571 (Version 2)
Quarter: 2024Q1

REPORT INFORMATION
  Report Type: Spontaneous
  Country: US (occurrence: US)
  Receive Date: 20240109
  Receipt Date: 20240115
  Transmission Date: 20240410
  Serious: No
  Sender: FDA-Public Use
  Company Number: US-PFIZER INC-PV202400001223

PATIENT
  Age: 79 Year
  Sex: Male

DRUGS (1)
  1. XELJANZ [Suspect]
     Active Substance: TOFACITINIB CITRATE
     Indication: Colitis ulcerative
     Dosage: 10 MG, 2X/DAY
     Route: 048
     Dates: start: 20221101

REACTIONS (9)
  - Sinusitis [Unknown]
  - Bowel movement irregularity [Unknown]
  - Cough [Not Recovered/Not Resolved]
  - Fatigue [Unknown]
  - Musculoskeletal chest pain [Unknown]
  - Myalgia [Unknown]
  - Ear congestion [Unknown]
  - Hypoacusis [Unknown]
  - Product dose omission in error [Unknown]
